FAERS Safety Report 19228527 (Version 1)
Quarter: 2021Q2

REPORT INFORMATION
  Report Type: Spontaneous
  Country: US (occurrence: US)
  Receive Date: 20210506
  Receipt Date: 20210506
  Transmission Date: 20210717
  Serious: No
  Sender: FDA-Public Use
  Company Number: US-ROCHE-2744688

PATIENT
  Age: 75 Year
  Sex: Male
  Weight: 73.55 kg

DRUGS (1)
  1. ESBRIET [Suspect]
     Active Substance: PIRFENIDONE
     Indication: PULMONARY FIBROSIS
     Route: 065
     Dates: start: 20200922, end: 20201119

REACTIONS (1)
  - Sunburn [Recovered/Resolved]

NARRATIVE: CASE EVENT DATE: 20201119
